FAERS Safety Report 5040618-9 (Version None)
Quarter: 2006Q2

REPORT INFORMATION
  Report Type: 
  Country: None (occurrence: None)
  Receive Date: 20060626
  Receipt Date: 20060626
  Transmission Date: 20061013
  Serious: Yes (Hospitalization)
  Sender: FDA-Public Use
  Company Number: None

PATIENT
  Sex: Female
  Weight: 82 kg

DRUGS (2)
  1. CARBOPLATIN [Suspect]
     Dosage: 536 MG
  2. TAXOL [Suspect]
     Dosage: 334 MG

REACTIONS (7)
  - ABDOMINAL PAIN [None]
  - BACTERIA BLOOD IDENTIFIED [None]
  - BACTERIAL INFECTION [None]
  - INTESTINAL PERFORATION [None]
  - NAUSEA [None]
  - NEUTROPENIA [None]
  - VOMITING [None]
